FAERS Safety Report 5186833-5 (Version None)
Quarter: 2006Q4

REPORT INFORMATION
  Report Type: 
  Country: None (occurrence: None)
  Receive Date: 20061213
  Receipt Date: 20061129
  Transmission Date: 20070319
  Serious: Yes (Other)
  Sender: FDA-Public Use
  Company Number: 2006US-04731

PATIENT
  Age: 16 Year
  Sex: Male

DRUGS (2)
  1. ISOTRETINOIN [Suspect]
     Indication: ACNE CYSTIC
     Dosage: 30 MG, QD
     Dates: start: 20060720, end: 20060927
  2. CLARAVIS [Suspect]

REACTIONS (8)
  - BLOOD IMMUNOGLOBULIN E INCREASED [None]
  - FATIGUE [None]
  - MYALGIA [None]
  - PHARYNGOLARYNGEAL PAIN [None]
  - RASH [None]
  - RASH ERYTHEMATOUS [None]
  - UPPER RESPIRATORY TRACT INFECTION [None]
  - VASCULITIS [None]
